FAERS Safety Report 12708012 (Version 3)
Quarter: 2016Q3

REPORT INFORMATION
  Report Type: Report from Study
  Country: NL (occurrence: NL)
  Receive Date: 20160901
  Receipt Date: 20160906
  Transmission Date: 20161109
  Serious: Yes (Other)
  Sender: FDA-Public Use
  Company Number: NL-ABBVIE-16P-114-1701312-00

PATIENT
  Age: 26 Year
  Sex: Female
  Weight: 93 kg

DRUGS (1)
  1. LUCRIN DEPOT [Suspect]
     Active Substance: LEUPROLIDE ACETATE
     Indication: ADJUSTMENT DISORDER WITH DEPRESSED MOOD
     Route: 065
     Dates: start: 20160729

REACTIONS (7)
  - Diarrhoea [Recovered/Resolved]
  - Hot flush [Not Recovered/Not Resolved]
  - Headache [Recovered/Resolved]
  - Feeling abnormal [Not Recovered/Not Resolved]
  - Menorrhagia [Recovered/Resolved]
  - Chest discomfort [Not Recovered/Not Resolved]
  - Headache [Recovered/Resolved]

NARRATIVE: CASE EVENT DATE: 20160729
